FAERS Safety Report 6167458-1 (Version None)
Quarter: 2009Q2

REPORT INFORMATION
  Report Type: 
  Country: None (occurrence: None)
  Receive Date: 20090424
  Receipt Date: 20090416
  Transmission Date: 20091009
  Serious: Yes (Hospitalization)
  Sender: FDA-Public Use
  Company Number: FR-PFIZER INC-2009200131

PATIENT

DRUGS (9)
  1. TAHOR [Suspect]
     Indication: HYPERTRIGLYCERIDAEMIA
  2. ALDACTAZINE [Concomitant]
     Indication: TYPE 2 DIABETES MELLITUS
     Dosage: UNK
  3. ALDACTAZINE [Concomitant]
     Indication: HYPERTENSION
  4. AMLODIPINE BESYLATE [Concomitant]
     Indication: TYPE 2 DIABETES MELLITUS
     Dosage: UNK
  5. AMLODIPINE BESYLATE [Concomitant]
     Indication: HYPERTENSION
  6. DIAMICRON [Concomitant]
     Indication: TYPE 2 DIABETES MELLITUS
  7. DIAMICRON [Concomitant]
     Indication: HYPERTENSION
  8. THIAZIDES [Concomitant]
     Indication: TYPE 2 DIABETES MELLITUS
  9. THIAZIDES [Concomitant]
     Indication: HYPERTENSION

REACTIONS (1)
  - DRUG RASH WITH EOSINOPHILIA AND SYSTEMIC SYMPTOMS [None]
